APPROVED DRUG PRODUCT: GRANISETRON HYDROCHLORIDE
Active Ingredient: GRANISETRON HYDROCHLORIDE
Strength: EQ 1MG BASE/ML (EQ 1MG BASE/ML)
Dosage Form/Route: INJECTABLE;INJECTION
Application: A077963 | Product #001
Applicant: TEVA PHARMACEUTICALS USA
Approved: Jan 3, 2008 | RLD: No | RS: No | Type: DISCN